FAERS Safety Report 6526521-3 (Version None)
Quarter: 2010Q1

REPORT INFORMATION
  Report Type: 
  Country: None (occurrence: None)
  Receive Date: 20100105
  Receipt Date: 20091230
  Transmission Date: 20100710
  Serious: Yes (Hospitalization)
  Sender: FDA-Public Use
  Company Number: ES-BRISTOL-MYERS SQUIBB COMPANY-14917041

PATIENT
  Sex: Female

DRUGS (1)
  1. BICNU [Suspect]

REACTIONS (2)
  - HYPERSENSITIVITY [None]
  - STEVENS-JOHNSON SYNDROME [None]
